FAERS Safety Report 8307826-2 (Version None)
Quarter: 2012Q2

REPORT INFORMATION
  Report Type: 
  Country: None (occurrence: None)
  Receive Date: 20120424
  Receipt Date: 20120412
  Transmission Date: 20120825
  Serious: Yes (Other)
  Sender: FDA-Public Use
  Company Number: US-ACTELION-A-US2012-64275

PATIENT

DRUGS (2)
  1. TRACLEER [Suspect]
     Indication: PULMONARY ARTERIAL HYPERTENSION
     Dosage: UNK
     Route: 048
     Dates: start: 20120214
  2. CALCIUM CHANNEL BLOCKERS [Concomitant]

REACTIONS (4)
  - CELLULITIS [None]
  - FALL [None]
  - NEOPLASM MALIGNANT [None]
  - SURGERY [None]
